FAERS Safety Report 18811799 (Version 4)
Quarter: 2021Q2

REPORT INFORMATION
  Report Type: Spontaneous
  Country: KZ (occurrence: KZ)
  Receive Date: 20210129
  Receipt Date: 20210410
  Transmission Date: 20210717
  Serious: Yes (Hospitalization, Other)
  Sender: FDA-Public Use
  Company Number: NVSC2021KZ014536

PATIENT
  Age: 30 Year
  Sex: Female

DRUGS (2)
  1. MEKINIST [Suspect]
     Active Substance: TRAMETINIB DIMETHYL SULFOXIDE
     Indication: METASTATIC MALIGNANT MELANOMA
     Dosage: 1 DF
     Route: 048
     Dates: start: 20201023, end: 20210129
  2. TAFINLAR [Suspect]
     Active Substance: DABRAFENIB MESYLATE
     Indication: METASTATIC MALIGNANT MELANOMA
     Dosage: 75 MG, BID (2 CAPSULES 2 TIMES PER DAY)
     Route: 048
     Dates: start: 20201023, end: 20210129

REACTIONS (8)
  - Vision blurred [Unknown]
  - Vitreous floaters [Unknown]
  - Conjunctival irritation [Unknown]
  - Vitreous degeneration [Recovering/Resolving]
  - Visual field defect [Unknown]
  - Visual impairment [Unknown]
  - Lacrimation increased [Unknown]
  - Eye irritation [Unknown]

NARRATIVE: CASE EVENT DATE: 20210110
